FAERS Safety Report 17504095 (Version 1)
Quarter: 2020Q1

REPORT INFORMATION
  Report Type: Spontaneous
  Country: ES (occurrence: ES)
  Receive Date: 20200305
  Receipt Date: 20200305
  Transmission Date: 20200409
  Serious: Yes (Other)
  Sender: FDA-Public Use
  Company Number: ES-MYLANLABS-2020M1023745

PATIENT
  Age: 82 Year
  Sex: Female

DRUGS (10)
  1. HIDROFEROL [Concomitant]
     Active Substance: CALCIFEDIOL
     Dosage: 266 MICROGRAM, BIMONTHLY
     Route: 048
     Dates: start: 20151111
  2. PRO ULCO [Concomitant]
     Dosage: 30 MILLIGRAM, QD
     Route: 048
     Dates: start: 20120615
  3. DYMISTA [Suspect]
     Active Substance: AZELASTINE HYDROCHLORIDE\FLUTICASONE PROPIONATE
     Indication: RHINITIS
     Dosage: 1 DOSAGE FORM, BID
     Route: 045
     Dates: start: 20191126, end: 20191220
  4. ATORVASTATINA CINFA [Concomitant]
     Active Substance: ATORVASTATIN CALCIUM
     Dosage: 40 MILLIGRAM, QD
     Route: 048
     Dates: start: 20160229
  5. NOCTAMID [Concomitant]
     Active Substance: LORMETAZEPAM
     Dosage: 1 MILLIGRAM, QD
     Route: 048
     Dates: start: 20191115
  6. MIRTAZAPINA NORMON [Concomitant]
     Dosage: 15 MILLIGRAM, QD
     Route: 048
     Dates: start: 20191203
  7. ADIRO [Concomitant]
     Active Substance: ASPIRIN
     Dosage: 100 MILLIGRAM, QD
     Route: 048
     Dates: start: 20120615
  8. PARACETAMOL KERN PHARMA [Concomitant]
     Dosage: 1 GRAM, Q8H
     Route: 048
     Dates: start: 20181011
  9. EZETROL [Concomitant]
     Active Substance: EZETIMIBE
     Dosage: 10 MILLIGRAM, QD
     Route: 048
     Dates: start: 20160229
  10. KARVEZIDE [Concomitant]
     Active Substance: HYDROCHLOROTHIAZIDE\IRBESARTAN
     Dosage: 1 DOSAGE FORM, QD
     Route: 048
     Dates: start: 20190416

REACTIONS (1)
  - Hypertensive crisis [Recovered/Resolved]

NARRATIVE: CASE EVENT DATE: 201911
